FAERS Safety Report 12962589 (Version 1)
Quarter: 2016Q4

REPORT INFORMATION
  Report Type: Spontaneous
  Country: PE (occurrence: PE)
  Receive Date: 20161121
  Receipt Date: 20161121
  Transmission Date: 20170207
  Serious: Yes (Other)
  Sender: FDA-Public Use
  Company Number: PE-AMGEN-PERSP2016164173

PATIENT
  Age: 60 Year
  Sex: Female

DRUGS (7)
  1. PROLIA [Suspect]
     Active Substance: DENOSUMAB
     Indication: OSTEOPOROSIS
     Dosage: 60 MG/ML, CYCLICAL
     Route: 058
     Dates: start: 20130503
  2. PROLIA [Suspect]
     Active Substance: DENOSUMAB
     Dosage: 60 MG/ML, CYCLICAL
     Route: 058
     Dates: start: 20141105
  3. PROLIA [Suspect]
     Active Substance: DENOSUMAB
     Dosage: 60 MG/ML, CYCLICAL
     Route: 058
     Dates: start: 20131104
  4. PROLIA [Suspect]
     Active Substance: DENOSUMAB
     Dosage: 60 MG/ML, CYCLICAL
     Route: 058
     Dates: start: 20150508
  5. PROLIA [Suspect]
     Active Substance: DENOSUMAB
     Dosage: 60 MG/ML, CYCLICAL
     Route: 058
     Dates: start: 20140505
  6. PROLIA [Suspect]
     Active Substance: DENOSUMAB
     Dosage: 60 MG/ML, CYCLICAL
     Route: 058
     Dates: start: 20151110
  7. PROLIA [Suspect]
     Active Substance: DENOSUMAB
     Dosage: 60 MG/ML, CYCLICAL
     Route: 058
     Dates: start: 20160503

REACTIONS (2)
  - Breast cancer [Not Recovered/Not Resolved]
  - Medication error [Unknown]

NARRATIVE: CASE EVENT DATE: 201511
